FAERS Safety Report 5584722-5 (Version None)
Quarter: 2008Q1

REPORT INFORMATION
  Report Type: 
  Country: None (occurrence: None)
  Receive Date: 20080108
  Receipt Date: 20071227
  Transmission Date: 20080703
  Serious: Yes (Other)
  Sender: FDA-Public Use
  Company Number: US-PFIZER INC-2007108710

PATIENT
  Sex: Male
  Weight: 59.09 kg

DRUGS (4)
  1. DILANTIN [Suspect]
     Indication: CONVULSION
  2. ECOTRIN [Concomitant]
  3. NAMENDA [Concomitant]
  4. OSCAL [Concomitant]

REACTIONS (3)
  - FALL [None]
  - HIP ARTHROPLASTY [None]
  - MEMORY IMPAIRMENT [None]
